FAERS Safety Report 8070686-1 (Version None)
Quarter: 2012Q1

REPORT INFORMATION
  Report Type: 
  Country: None (occurrence: None)
  Receive Date: 20120125
  Receipt Date: 20120121
  Transmission Date: 20120608
  Serious: Yes (Death)
  Sender: FDA-Public Use
  Company Number: PHHY2011CA87414

PATIENT
  Sex: Female
  Weight: 53.968 kg

DRUGS (8)
  1. MIACALCIN [Concomitant]
  2. HORMONES [Concomitant]
  3. VITAMIN D [Concomitant]
  4. CALCIUM [Concomitant]
  5. ZOLEDRONOC ACID [Suspect]
     Indication: OSTEOPOROSIS
     Dosage: 5 MG, ANNUALLY
     Route: 042
     Dates: start: 20100331
  6. EVISTA [Concomitant]
  7. DIDROCAL [Concomitant]
  8. FORTEO [Concomitant]

REACTIONS (1)
  - DEATH [None]
